FAERS Safety Report 17105831 (Version 1)
Quarter: 2019Q4

REPORT INFORMATION
  Report Type: Spontaneous
  Country: GR (occurrence: GR)
  Receive Date: 20191203
  Receipt Date: 20191203
  Transmission Date: 20200122
  Serious: Yes (Other)
  Sender: FDA-Public Use
  Company Number: GR-B.I. PHARMACEUTICALS,INC./RIDGEFIELD-2019-12-116806

PATIENT
  Age: 56 Year
  Sex: Female
  Weight: 67 kg

DRUGS (9)
  1. TRULICITY [Suspect]
     Active Substance: DULAGLUTIDE
     Indication: TYPE 2 DIABETES MELLITUS
     Route: 048
     Dates: start: 20191107, end: 20191112
  2. T4 [Concomitant]
     Active Substance: LEVOTHYROXINE
     Indication: HYPOTHYROIDISM
     Route: 048
     Dates: start: 20151120, end: 20191113
  3. OLARTAN [Concomitant]
     Active Substance: OLMESARTAN MEDOXOMIL
     Indication: HYPERLIPIDAEMIA
  4. ROSUBEN [Concomitant]
     Indication: HYPERLIPIDAEMIA
     Route: 048
     Dates: start: 20151120, end: 20191113
  5. SYNJARDY [Suspect]
     Active Substance: EMPAGLIFLOZIN\METFORMIN HYDROCHLORIDE
     Indication: TYPE 2 DIABETES MELLITUS
     Dosage: FORM STRENGTH: 12.5 MG/1,000 MG
     Route: 048
     Dates: start: 20191107, end: 20191112
  6. OLARTAN [Concomitant]
     Active Substance: OLMESARTAN MEDOXOMIL
     Indication: HYPERTENSION
     Route: 048
     Dates: start: 20151120, end: 20191113
  7. ROSUBEN [Concomitant]
     Indication: HYPERTENSION
  8. LERCADIP [LERCANIDIPINE] [Concomitant]
     Indication: HYPERLIPIDAEMIA
     Route: 048
     Dates: start: 20151120, end: 20191113
  9. LERCADIP [LERCANIDIPINE] [Concomitant]
     Indication: HYPERTENSION

REACTIONS (3)
  - Abdominal pain [Not Recovered/Not Resolved]
  - Flatulence [Not Recovered/Not Resolved]
  - Dehydration [Not Recovered/Not Resolved]

NARRATIVE: CASE EVENT DATE: 20191111
